FAERS Safety Report 24617740 (Version 1)
Quarter: 2024Q4

REPORT INFORMATION
  Report Type: Report from Study
  Country: CA (occurrence: CA)
  Receive Date: 20241114
  Receipt Date: 20241114
  Transmission Date: 20250115
  Serious: Yes (Other)
  Sender: NOVARTIS
  Company Number: CA-002147023-NVSC2024CA123522

PATIENT
  Age: 63 Year
  Sex: Female

DRUGS (1)
  1. COSENTYX [Suspect]
     Active Substance: SECUKINUMAB
     Indication: Psoriasis
     Dosage: 300 MG, QMO
     Route: 058
     Dates: start: 20151226

REACTIONS (4)
  - Stoma site abscess [Unknown]
  - Insomnia [Unknown]
  - Psoriasis [Unknown]
  - Fistula [Unknown]

NARRATIVE: CASE EVENT DATE: 20240809
